FAERS Safety Report 20299601 (Version 1)
Quarter: 2022Q1

REPORT INFORMATION
  Report Type: Spontaneous
  Country: US (occurrence: None)
  Receive Date: 20220105
  Receipt Date: 20220105
  Transmission Date: 20220423
  Serious: Yes (Death)
  Sender: FDA-Public Use
  Company Number: None

PATIENT
  Age: 59 Year
  Sex: Male

DRUGS (1)
  1. TEMOZOLOMIDE [Suspect]
     Active Substance: TEMOZOLOMIDE
     Indication: Brain neoplasm malignant
     Dosage: 500 MG (5 CAPSULES) DAILY FOR 5 DAYS EVERY 28 DAYS
     Route: 048
     Dates: start: 20201008, end: 20210728

REACTIONS (1)
  - Death [None]

NARRATIVE: CASE EVENT DATE: 20210728
